FAERS Safety Report 17720873 (Version 3)
Quarter: 2022Q4

REPORT INFORMATION
  Report Type: Spontaneous
  Country: US (occurrence: None)
  Receive Date: 20200428
  Receipt Date: 20221220
  Transmission Date: 20230113
  Serious: Yes (Hospitalization, Other)
  Sender: FDA-Public Use
  Company Number: 2020SE54463

PATIENT
  Age: 42 Year
  Sex: Female
  Weight: 80.3 kg

DRUGS (38)
  1. NEXIUM [Suspect]
     Active Substance: ESOMEPRAZOLE MAGNESIUM
     Indication: Gastrooesophageal reflux disease
     Route: 048
     Dates: start: 201501, end: 201812
  2. NEXIUM [Suspect]
     Active Substance: ESOMEPRAZOLE MAGNESIUM
     Indication: Gastrooesophageal reflux disease
     Dosage: 20-40 MG ONCE DAILY
     Route: 048
     Dates: start: 2015, end: 2018
  3. PRILOSEC [Suspect]
     Active Substance: OMEPRAZOLE MAGNESIUM
     Indication: Gastrooesophageal reflux disease
     Route: 048
     Dates: start: 201501, end: 201812
  4. PRILOSEC [Suspect]
     Active Substance: OMEPRAZOLE MAGNESIUM
     Indication: Gastrooesophageal reflux disease
     Dosage: 20-40 MG ONCE DAILY
     Route: 048
     Dates: start: 2015, end: 2018
  5. NEXIUM 24HR [Suspect]
     Active Substance: ESOMEPRAZOLE MAGNESIUM
     Route: 048
     Dates: start: 201501, end: 201812
  6. ATORVASTATIN [Concomitant]
     Active Substance: ATORVASTATIN
  7. CYCLOBENZAPRINE [Concomitant]
     Active Substance: CYCLOBENZAPRINE
  8. GLIPIZIDE [Concomitant]
     Active Substance: GLIPIZIDE
  9. FLUCELVAX NOS [Concomitant]
     Active Substance: INFLUENZA A VIRUS A/BRISBANE/10/2010 (H1N1) ANTIGEN (MDCK CELL DERIVED, PROPIOLACTONE INACTIVATED)\I
  10. INSULIN NOS [Concomitant]
     Active Substance: INSULIN NOS
  11. INVEGA SUSTENNA [Concomitant]
     Active Substance: PALIPERIDONE PALMITATE
  12. IPRATROPIUM [Concomitant]
     Active Substance: IPRATROPIUM
  13. KETOCONAZOLE [Concomitant]
     Active Substance: KETOCONAZOLE
  14. LEVEMIR [Concomitant]
     Active Substance: INSULIN DETEMIR
  15. LIDOCAINE [Concomitant]
     Active Substance: LIDOCAINE
  16. METFORMIN [Concomitant]
     Active Substance: METFORMIN HYDROCHLORIDE
  17. NAPROXEN [Concomitant]
     Active Substance: NAPROXEN
  18. METHYLPREDNISOLONE [Concomitant]
     Active Substance: METHYLPREDNISOLONE
  19. MUPIROCIN CALCIUM [Concomitant]
     Active Substance: MUPIROCIN CALCIUM
  20. NICOTROL [Concomitant]
     Active Substance: NICOTINE
  21. NOVOLIN NOS [Concomitant]
     Active Substance: INSULIN HUMAN
  22. PANTOPRAZOLE [Concomitant]
     Active Substance: PANTOPRAZOLE
  23. SULFAMETHOXAZOLE [Concomitant]
     Active Substance: SULFAMETHOXAZOLE
  24. BUDESONIDE\FORMOTEROL [Concomitant]
     Active Substance: BUDESONIDE\FORMOTEROL
  25. TRAMADOL [Concomitant]
     Active Substance: TRAMADOL
  26. AFLURIA NOS [Concomitant]
     Active Substance: INFLUENZA VIRUS VACCINE TRIVALENT TYPE A+B AFLURIA
  27. LISINOPRIL [Concomitant]
     Active Substance: LISINOPRIL
  28. MIRTAZAPINE [Concomitant]
     Active Substance: MIRTAZAPINE
  29. SIMVASTATIN [Concomitant]
     Active Substance: SIMVASTATIN
  30. ROSUVASTATIN [Concomitant]
     Active Substance: ROSUVASTATIN
  31. OXYCODON- ACETAMINOPHEN [Concomitant]
  32. IBUPROFEN [Concomitant]
     Active Substance: IBUPROFEN
  33. METRONIDAZOLE [Concomitant]
     Active Substance: METRONIDAZOLE
  34. DOXYCYCLINE [Concomitant]
     Active Substance: DOXYCYCLINE
  35. DICYCLOMINE [Concomitant]
     Active Substance: DICYCLOMINE HYDROCHLORIDE
  36. AMOXICILLIN [Concomitant]
     Active Substance: AMOXICILLIN
  37. TRAZODONE [Concomitant]
     Active Substance: TRAZODONE HYDROCHLORIDE
  38. MECLIZINE [Concomitant]
     Active Substance: MECLIZINE HYDROCHLORIDE

REACTIONS (1)
  - Chronic kidney disease [Not Recovered/Not Resolved]

NARRATIVE: CASE EVENT DATE: 20190101
